FAERS Safety Report 7969984-9 (Version None)
Quarter: 2011Q4

REPORT INFORMATION
  Report Type: 
  Country: None (occurrence: None)
  Receive Date: 20111212
  Receipt Date: 20111129
  Transmission Date: 20120403
  Serious: Yes (Hospitalization, Other)
  Sender: FDA-Public Use
  Company Number: BR-US-EMD SERONO, INC.-7099174

PATIENT
  Sex: Female

DRUGS (5)
  1. ACETAMINOPHEN [Concomitant]
  2. FLUOXETINE [Concomitant]
  3. ENALAPRIL MALEATE [Concomitant]
  4. REBIF [Suspect]
     Indication: RELAPSING-REMITTING MULTIPLE SCLEROSIS
     Dates: start: 20080201
  5. HYDROCHLOROTHIAZIDE [Concomitant]

REACTIONS (8)
  - MICTURITION URGENCY [None]
  - MALAISE [None]
  - CHOKING [None]
  - DIABETES MELLITUS [None]
  - APATHY [None]
  - INSOMNIA [None]
  - HEADACHE [None]
  - MOOD ALTERED [None]
